FAERS Safety Report 12686652 (Version 1)
Quarter: 2016Q3

REPORT INFORMATION
  Report Type: Spontaneous
  Country: CN (occurrence: CN)
  Receive Date: 20160825
  Receipt Date: 20160825
  Transmission Date: 20161109
  Serious: Yes (Other)
  Sender: FDA-Public Use
  Company Number: CN-TEVA-687001ISR

PATIENT
  Age: 27 Year
  Sex: Male

DRUGS (6)
  1. METHOTREXATE. [Concomitant]
     Active Substance: METHOTREXATE
     Indication: PERIPHERAL T-CELL LYMPHOMA UNSPECIFIED
     Dosage: 12 MG
     Route: 065
     Dates: start: 200910, end: 201002
  2. DEXAMETHASONE. [Suspect]
     Active Substance: DEXAMETHASONE
     Indication: PERIPHERAL T-CELL LYMPHOMA UNSPECIFIED
     Dosage: 1-H INFUSION ON DAYS 1, 2, 3, 4 AND 5
     Route: 050
     Dates: start: 200910, end: 201002
  3. DEXAMETHASONE. [Suspect]
     Active Substance: DEXAMETHASONE
     Dosage: 5 MG ON DAYS 2 AND 7
     Route: 037
     Dates: start: 200910, end: 201002
  4. FOTEMUSTINE [Concomitant]
     Active Substance: FOTEMUSTINE
     Indication: PERIPHERAL T-CELL LYMPHOMA UNSPECIFIED
     Dosage: 100 MG/M2 BY 1-H INFUSION ON DAY 1
     Route: 050
     Dates: start: 200910, end: 201002
  5. TENIPOSIDE. [Concomitant]
     Active Substance: TENIPOSIDE
     Indication: PERIPHERAL T-CELL LYMPHOMA UNSPECIFIED
     Dosage: 60 MG/M2 BY MORE THEN 0.5-H INFUSION ON DAYS 2, 3 AND 4
     Route: 050
     Dates: start: 200910, end: 201002
  6. CYTARABINE. [Concomitant]
     Active Substance: CYTARABINE
     Indication: PERIPHERAL T-CELL LYMPHOMA UNSPECIFIED
     Dosage: 50 MG
     Route: 065
     Dates: start: 200910, end: 201002

REACTIONS (1)
  - Osteonecrosis [Unknown]
